FAERS Safety Report 20578924 (Version 1)
Quarter: 2022Q1

REPORT INFORMATION
  Report Type: Spontaneous
  Country: US (occurrence: None)
  Receive Date: 20220310
  Receipt Date: 20220310
  Transmission Date: 20220423
  Serious: No
  Sender: FDA-Public Use
  Company Number: None

PATIENT
  Age: 81 Year
  Sex: Female
  Weight: 49.86 kg

DRUGS (3)
  1. EVUSHELD [Suspect]
     Active Substance: CILGAVIMAB\TIXAGEVIMAB
     Indication: COVID-19 prophylaxis
     Dosage: FREQUENCY : ONCE;?
     Route: 030
     Dates: start: 20220302, end: 20220302
  2. BRENTUXIMAB [Concomitant]
     Active Substance: BRENTUXIMAB
     Dates: start: 20220223, end: 20220224
  3. RITUXIMAB [Concomitant]
     Active Substance: RITUXIMAB
     Dates: start: 20220223

REACTIONS (5)
  - Erythema [None]
  - Pruritus [None]
  - Urticaria [None]
  - Rash [None]
  - Rash [None]

NARRATIVE: CASE EVENT DATE: 20220306
